FAERS Safety Report 9391735 (Version 7)
Quarter: 2020Q3

REPORT INFORMATION
  Report Type: Spontaneous
  Country: JP (occurrence: JP)
  Receive Date: 20130709
  Receipt Date: 20200702
  Transmission Date: 20201103
  Serious: Yes (Life-Threatening, Hospitalization, Other)
  Sender: FDA-Public Use
  Company Number: JP-GLAXOSMITHKLINE-B0905662A

PATIENT
  Age: 39 Year
  Sex: Male

DRUGS (9)
  1. LAMICTAL [Suspect]
     Active Substance: LAMOTRIGINE
     Dosage: 25 MG, BID
     Route: 048
     Dates: start: 20130605, end: 20130618
  2. CARBOLITH [Suspect]
     Active Substance: LITHIUM CARBONATE
     Dosage: 1000 MG, 1D
     Route: 048
  3. CARBOLITH [Suspect]
     Active Substance: LITHIUM CARBONATE
     Indication: BIPOLAR DISORDER
     Dosage: UNK
     Route: 048
     Dates: start: 20130327
  4. VALERIN [Concomitant]
     Dosage: 200 MG, BID
     Dates: start: 20130605
  5. VALERIN [Concomitant]
     Dosage: 200 MG, BID
     Dates: start: 201210, end: 201210
  6. LAMICTAL [Suspect]
     Active Substance: LAMOTRIGINE
     Dosage: 25 MG, QD
     Route: 048
     Dates: start: 20130522, end: 20130604
  7. VALERIN [Concomitant]
     Dosage: 400 MG, BID
     Dates: start: 201211, end: 20130521
  8. VALERIN [Concomitant]
     Dates: start: 20130522, end: 20130604
  9. LAMICTAL [Suspect]
     Active Substance: LAMOTRIGINE
     Indication: BIPOLAR I DISORDER
     Dosage: 25 MG, QOD
     Route: 048
     Dates: start: 20130508, end: 20130521

REACTIONS (2)
  - Stevens-Johnson syndrome [Recovering/Resolving]
  - Drug reaction with eosinophilia and systemic symptoms [Unknown]

NARRATIVE: CASE EVENT DATE: 20130608
